FAERS Safety Report 8922004 (Version 1)
Quarter: 2012Q4

REPORT INFORMATION
  Report Type: Spontaneous
  Country: US (occurrence: None)
  Receive Date: 20121120
  Receipt Date: 20121120
  Transmission Date: 20130627
  Serious: Yes (Life-Threatening, Hospitalization, Disabling, Other)
  Sender: FDA-Public Use
  Company Number: None

PATIENT
  Age: 74 Year
  Sex: Female
  Weight: 64.86 kg

DRUGS (1)
  1. SPIRIVA [Suspect]
     Indication: COPD
     Dosage: Inhale  1x/day  Endotracheal
     Route: 007
     Dates: start: 20070101, end: 20111201

REACTIONS (6)
  - Cystitis [None]
  - Disease recurrence [None]
  - Renal failure acute [None]
  - Renal disorder [None]
  - Renal failure chronic [None]
  - Fluid retention [None]
